FAERS Safety Report 10503421 (Version 1)
Quarter: 2014Q4

REPORT INFORMATION
  Report Type: Report from Study
  Country: US (occurrence: US)
  Receive Date: 20141008
  Receipt Date: 20141008
  Transmission Date: 20150528
  Serious: Yes (Hospitalization)
  Sender: FDA-Public Use
  Company Number: US-BIOGENIDEC-2014BI101478

PATIENT
  Age: 26 Year
  Sex: Female

DRUGS (1)
  1. AVONEX [Suspect]
     Active Substance: INTERFERON BETA-1A
     Indication: MULTIPLE SCLEROSIS
     Route: 030
     Dates: start: 20140127

REACTIONS (10)
  - Central nervous system lesion [Recovered/Resolved]
  - Appendicitis [Recovered/Resolved]
  - Loss of consciousness [Recovered/Resolved]
  - Progressive multiple sclerosis [Not Recovered/Not Resolved]
  - Dysphemia [Recovered/Resolved]
  - Back pain [Unknown]
  - Vomiting [Recovered/Resolved]
  - Sopor [Recovered/Resolved]
  - Pain [Unknown]
  - Fibromyalgia [Not Recovered/Not Resolved]

NARRATIVE: CASE EVENT DATE: 2014
